FAERS Safety Report 12650746 (Version 1)
Quarter: 2016Q3

REPORT INFORMATION
  Report Type: Spontaneous
  Country: US (occurrence: US)
  Receive Date: 20160815
  Receipt Date: 20160815
  Transmission Date: 20161109
  Serious: No
  Sender: FDA-Public Use
  Company Number: US-JAZZ-2016-US-004699

PATIENT
  Sex: Female

DRUGS (32)
  1. ACYCLOVIR. [Concomitant]
     Active Substance: ACYCLOVIR
  2. TOPIRAMATE. [Concomitant]
     Active Substance: TOPIRAMATE
  3. VENLAFAXINE [Concomitant]
     Active Substance: VENLAFAXINE HYDROCHLORIDE
  4. RED CLOVER [Concomitant]
     Active Substance: RED CLOVER
  5. FUROSEMIDE. [Concomitant]
     Active Substance: FUROSEMIDE
  6. VITAMIN D [Concomitant]
     Active Substance: CHOLECALCIFEROL
  7. CYCLOBENZAPRINE [Concomitant]
     Active Substance: CYCLOBENZAPRINE
  8. MUPIROCIN. [Concomitant]
     Active Substance: MUPIROCIN
  9. BACLOFEN. [Concomitant]
     Active Substance: BACLOFEN
  10. BUPROPION HCL [Concomitant]
     Active Substance: BUPROPION HYDROCHLORIDE
  11. MAGNESIUM [Concomitant]
     Active Substance: MAGNESIUM
  12. BOTOX [Concomitant]
     Active Substance: ONABOTULINUMTOXINA
  13. DIAZEPAM. [Concomitant]
     Active Substance: DIAZEPAM
  14. RHODIOLA [Concomitant]
     Active Substance: HERBALS
  15. DOXYCYCLINE HYCLATE. [Concomitant]
     Active Substance: DOXYCYCLINE HYCLATE
  16. NADOLOL. [Concomitant]
     Active Substance: NADOLOL
  17. CLONAZEPAM. [Concomitant]
     Active Substance: CLONAZEPAM
  18. VITAMIN D3 [Concomitant]
     Active Substance: CHOLECALCIFEROL
  19. GRAPEFRUIT. [Concomitant]
     Active Substance: GRAPEFRUIT
  20. FOLIC ACID. [Concomitant]
     Active Substance: FOLIC ACID
  21. SYNTHROID [Concomitant]
     Active Substance: LEVOTHYROXINE SODIUM
  22. XYREM [Suspect]
     Active Substance: SODIUM OXYBATE
     Indication: INSOMNIA
     Dosage: 4.5 G, BID
     Route: 048
     Dates: start: 201512
  23. AMITRIPTYLINE [Concomitant]
     Active Substance: AMITRIPTYLINE
  24. VITAMIN B COMPLEX [Concomitant]
     Active Substance: CYANOCOBALAMIN\DEXPANTHENOL\NIACINAMIDE\PYRIDOXINE HYDROCHLORIDE\RIBOFLAVIN 5^-PHOSPHATE SODIUM\THIAMINE HYDROCHLORIDE\VITAMIN B COMPLEX
  25. FLUCONAZOLE. [Concomitant]
     Active Substance: FLUCONAZOLE
  26. CETIRIZINE [Concomitant]
     Active Substance: CETIRIZINE HYDROCHLORIDE
  27. PHENAZOPYRIDINE. [Concomitant]
     Active Substance: PHENAZOPYRIDINE
  28. CALCI [Concomitant]
  29. ONDANSETRON [Concomitant]
     Active Substance: ONDANSETRON
  30. ROPINIROLE HCL [Concomitant]
     Active Substance: ROPINIROLE HYDROCHLORIDE
  31. ESTRADIOL. [Concomitant]
     Active Substance: ESTRADIOL
  32. RESTASIS [Concomitant]
     Active Substance: CYCLOSPORINE

REACTIONS (2)
  - Alopecia [Unknown]
  - Stress [Unknown]
